FAERS Safety Report 8599088-6 (Version None)
Quarter: 2012Q3

REPORT INFORMATION
  Report Type: 
  Country: None (occurrence: None)
  Receive Date: 20120816
  Receipt Date: 20120807
  Transmission Date: 20120928
  Serious: Yes (Other)
  Sender: FDA-Public Use
  Company Number: US-ASTRAZENECA-2011SE53583

PATIENT
  Age: 66 Year
  Sex: Female
  Weight: 86.2 kg

DRUGS (5)
  1. BROMOCRIPTINE MESYLATE [Concomitant]
  2. SEROQUEL [Suspect]
     Dosage: 25MG ONCE OR TWICE DAILY
     Route: 048
  3. ADDERALL 5 [Concomitant]
  4. SEROQUEL [Suspect]
     Route: 048
     Dates: start: 20080101
  5. METOPROLOL TARTRATE [Concomitant]
     Indication: HEART RATE INCREASED

REACTIONS (2)
  - BREAST CANCER [None]
  - THERAPEUTIC RESPONSE UNEXPECTED [None]
